FAERS Safety Report 9230391 (Version 2)
Quarter: 2013Q2

REPORT INFORMATION
  Report Type: Spontaneous
  Country: IT (occurrence: IT)
  Receive Date: 20130415
  Receipt Date: 20130430
  Transmission Date: 20140414
  Serious: Yes (Other)
  Sender: FDA-Public Use
  Company Number: IT-PFIZER INC-2013115997

PATIENT
  Age: 77 Year
  Sex: Female
  Weight: 73 kg

DRUGS (2)
  1. CAMPTO [Suspect]
     Indication: COLON CANCER
     Dosage: 180 MG/M2, CYCLIC
     Route: 042
     Dates: start: 20130305, end: 20130305
  2. CAMPTO [Suspect]
     Dosage: 150 MG/M2, CYCLIC
     Dates: start: 20130319, end: 20130319

REACTIONS (4)
  - Panniculitis [Recovered/Resolved with Sequelae]
  - Erythema [Recovered/Resolved with Sequelae]
  - Face oedema [Recovered/Resolved with Sequelae]
  - Skin ulcer [Recovered/Resolved with Sequelae]
